FAERS Safety Report 20565867 (Version 1)
Quarter: 2022Q1

REPORT INFORMATION
  Report Type: Spontaneous
  Country: US (occurrence: None)
  Receive Date: 20220307
  Receipt Date: 20220307
  Transmission Date: 20220423
  Serious: Yes (Hospitalization)
  Sender: FDA-Public Use
  Company Number: None

PATIENT
  Age: 36 Year
  Sex: Female
  Weight: 53.1 kg

DRUGS (8)
  1. SIMPONI [Suspect]
     Active Substance: GOLIMUMAB
     Indication: Psoriatic arthropathy
     Dates: start: 20211216, end: 20220302
  2. SIMPONI [Suspect]
     Active Substance: GOLIMUMAB
     Indication: Colitis
  3. TIROSENT [Concomitant]
  4. MAXALT [Concomitant]
     Active Substance: RIZATRIPTAN BENZOATE
  5. MARINOL [Concomitant]
     Active Substance: DRONABINOL
  6. NYQUIL [Concomitant]
  7. BENADRYL [Concomitant]
  8. TYLENOL [Concomitant]

REACTIONS (7)
  - Contusion [None]
  - Muscle spasms [None]
  - Blister [None]
  - Rash [None]
  - Blindness [None]
  - Ocular hyperaemia [None]
  - Contusion [None]

NARRATIVE: CASE EVENT DATE: 20220301
